FAERS Safety Report 11193731 (Version 3)
Quarter: 2016Q4

REPORT INFORMATION
  Report Type: Spontaneous
  Country: BG (occurrence: BG)
  Receive Date: 20150616
  Receipt Date: 20161019
  Transmission Date: 20170206
  Serious: Yes (Other)
  Sender: FDA-Public Use
  Company Number: BG-ASTRAZENECA-2015SE57481

PATIENT
  Age: 82 Year
  Sex: Male

DRUGS (12)
  1. FURANTHRIL [Concomitant]
  2. FRAXIPARIN [Concomitant]
     Active Substance: NADROPARIN CALCIUM
     Dosage: 0,4 ML
  3. BRILIQUE [Suspect]
     Active Substance: TICAGRELOR
     Route: 048
  4. DEXAMETHASONE. [Concomitant]
     Active Substance: DEXAMETHASONE
     Dosage: 4 MG ? 24 MG
  5. ZARANTA [Interacting]
     Active Substance: ROSUVASTATIN CALCIUM
     Route: 048
  6. PROBITOR [Concomitant]
     Dosage: 40 MG ? 1
  7. CYPRINOL [Concomitant]
  8. OMEPRAZID [Concomitant]
  9. KALIMIN [Concomitant]
     Dosage: 60 MG 2?1/2
  10. DEGAN [Concomitant]
     Active Substance: METOCLOPRAMIDE HYDROCHLORIDE
  11. CONCOR [Concomitant]
     Active Substance: BISOPROLOL FUMARATE
     Dosage: 5 MG ? ??? TABL
  12. HUMAN ALBUMIN [Concomitant]
     Active Substance: ALBUMIN HUMAN
     Dosage: 100 ML+100 ML

REACTIONS (2)
  - Rhabdomyolysis [Unknown]
  - Drug interaction [Unknown]
